FAERS Safety Report 14922951 (Version 14)
Quarter: 2021Q3

REPORT INFORMATION
  Report Type: Report from Study
  Country: CA (occurrence: CA)
  Receive Date: 20180522
  Receipt Date: 20210706
  Transmission Date: 20211014
  Serious: Yes (Hospitalization, Other)
  Sender: FDA-Public Use
  Company Number: PHHY2017CA185426

PATIENT
  Sex: Female

DRUGS (15)
  1. ILARIS [Suspect]
     Active Substance: CANAKINUMAB
     Indication: MUCKLE-WELLS SYNDROME
     Dosage: 150 MG, Q3W
     Route: 058
     Dates: start: 20151215
  2. ILARIS [Suspect]
     Active Substance: CANAKINUMAB
     Dosage: 150 MG, Q3W
     Route: 058
     Dates: start: 20190114
  3. ILARIS [Suspect]
     Active Substance: CANAKINUMAB
     Dosage: UNK
     Route: 065
     Dates: start: 20181009
  4. ILARIS [Suspect]
     Active Substance: CANAKINUMAB
     Dosage: 150 MG, Q3W
     Route: 058
  5. ILARIS [Suspect]
     Active Substance: CANAKINUMAB
     Dosage: 150 MG, Q3W
     Route: 058
     Dates: start: 20190410
  6. VIDEXTRA [Concomitant]
     Indication: PRODUCT USED FOR UNKNOWN INDICATION
     Dosage: UNK
     Route: 065
  7. ILARIS [Suspect]
     Active Substance: CANAKINUMAB
     Dosage: 150 MG, Q3W
     Route: 058
  8. CLAVULIN [Concomitant]
     Active Substance: AMOXICILLIN\CLAVULANATE POTASSIUM
     Indication: PRODUCT USED FOR UNKNOWN INDICATION
     Dosage: UNK
     Route: 065
  9. NASONEX [Concomitant]
     Active Substance: MOMETASONE FUROATE
     Indication: PRODUCT USED FOR UNKNOWN INDICATION
     Dosage: UNK
     Route: 065
  10. SINGULAIR [Concomitant]
     Active Substance: MONTELUKAST SODIUM
     Indication: PRODUCT USED FOR UNKNOWN INDICATION
     Dosage: UNK
     Route: 065
  11. ILARIS [Suspect]
     Active Substance: CANAKINUMAB
     Dosage: 150 MG, Q3W
     Route: 058
     Dates: start: 201903
  12. ILARIS [Suspect]
     Active Substance: CANAKINUMAB
     Dosage: UNK
     Route: 065
     Dates: start: 20210518, end: 20210518
  13. VIMOVO [Concomitant]
     Active Substance: ESOMEPRAZOLE MAGNESIUM\NAPROXEN
     Indication: PRODUCT USED FOR UNKNOWN INDICATION
     Dosage: UNK
     Route: 065
  14. MUPIROCIN. [Concomitant]
     Active Substance: MUPIROCIN
     Indication: PRODUCT USED FOR UNKNOWN INDICATION
     Dosage: UNK
     Route: 061
  15. ILARIS [Suspect]
     Active Substance: CANAKINUMAB
     Dosage: 150 MG, Q3W
     Route: 058
     Dates: start: 20190204

REACTIONS (57)
  - Cardiac flutter [Unknown]
  - Deafness [Recovering/Resolving]
  - Rash erythematous [Not Recovered/Not Resolved]
  - Headache [Recovering/Resolving]
  - Wheezing [Unknown]
  - Sensitivity to weather change [Recovering/Resolving]
  - Palpitations [Unknown]
  - Rhonchi [Unknown]
  - Pain [Unknown]
  - Bronchitis [Unknown]
  - Osteonecrosis [Unknown]
  - Musculoskeletal stiffness [Recovered/Resolved]
  - Dyspnoea [Unknown]
  - Mastitis [Unknown]
  - Joint swelling [Unknown]
  - Cyst [Unknown]
  - Rhinorrhoea [Unknown]
  - Malaise [Unknown]
  - Skin irritation [Unknown]
  - Back pain [Unknown]
  - Viral pharyngitis [Unknown]
  - Pyrexia [Not Recovered/Not Resolved]
  - Tachycardia [Unknown]
  - Rash [Recovering/Resolving]
  - Rhinitis allergic [Unknown]
  - Feeling abnormal [Unknown]
  - Drug ineffective [Unknown]
  - Pneumonia [Unknown]
  - Immunodeficiency [Unknown]
  - Pruritus [Recovering/Resolving]
  - Vision blurred [Unknown]
  - Oropharyngeal pain [Recovered/Resolved]
  - Head discomfort [Unknown]
  - Migraine [Unknown]
  - Weight decreased [Unknown]
  - Abdominal pain [Unknown]
  - Dizziness [Not Recovered/Not Resolved]
  - Muckle-Wells syndrome [Unknown]
  - Viral infection [Unknown]
  - Lower respiratory tract infection [Unknown]
  - Urticaria [Recovering/Resolving]
  - Ocular hyperaemia [Unknown]
  - Arthritis [Unknown]
  - Cough [Unknown]
  - Allodynia [Unknown]
  - Serum amyloid A protein increased [Unknown]
  - Asthenia [Unknown]
  - Viral upper respiratory tract infection [Unknown]
  - Condition aggravated [Unknown]
  - Breast tenderness [Not Recovered/Not Resolved]
  - Arthralgia [Unknown]
  - Pigmentation disorder [Recovering/Resolving]
  - Burning sensation [Recovering/Resolving]
  - Mydriasis [Unknown]
  - Nodule [Unknown]
  - Nasal congestion [Unknown]
  - Gastrooesophageal reflux disease [Unknown]

NARRATIVE: CASE EVENT DATE: 2017
